FAERS Safety Report 10193898 (Version 1)
Quarter: 2014Q2

REPORT INFORMATION
  Report Type: Spontaneous
  Country: US (occurrence: US)
  Receive Date: 20140524
  Receipt Date: 20140524
  Transmission Date: 20141212
  Serious: No
  Sender: FDA-Public Use
  Company Number: US-SANOFI-AVENTIS-2013SA045421

PATIENT
  Age: 10 Year
  Sex: Male

DRUGS (3)
  1. SOLOSTAR [Suspect]
     Indication: TYPE 1 DIABETES MELLITUS
     Dosage: TAKEN FROM- 2 YEARS
  2. LANTUS SOLOSTAR [Suspect]
     Indication: TYPE 1 DIABETES MELLITUS
     Dosage: TAKEN FROM- 2 YEARS DOSE:10 UNIT(S)
     Route: 065
  3. HUMALOG [Concomitant]

REACTIONS (5)
  - Contusion [Recovered/Resolved]
  - Injection site erythema [Recovered/Resolved]
  - Blood glucose increased [Unknown]
  - Injection site haemorrhage [Recovered/Resolved]
  - Injection site irritation [Recovered/Resolved]
